FAERS Safety Report 6633770-2 (Version None)
Quarter: 2010Q1

REPORT INFORMATION
  Report Type: 
  Country: None (occurrence: None)
  Receive Date: 20100315
  Receipt Date: 20100306
  Transmission Date: 20100710
  Serious: Yes (Other)
  Sender: FDA-Public Use
  Company Number: US-RB-004577-10

PATIENT
  Age: 8 Year
  Sex: Female
  Weight: 40.5 kg

DRUGS (1)
  1. MUCINEX [Suspect]
     Dosage: DRANK 6 TABLESPOONS
     Route: 048
     Dates: start: 20100306

REACTIONS (2)
  - NO ADVERSE EVENT [None]
  - OVERDOSE [None]
